FAERS Safety Report 15907881 (Version 5)
Quarter: 2019Q3

REPORT INFORMATION
  Report Type: Spontaneous
  Country: PT (occurrence: PT)
  Receive Date: 20190204
  Receipt Date: 20190724
  Transmission Date: 20191004
  Serious: Yes (Hospitalization, Other)
  Sender: FDA-Public Use
  Company Number: PT-MYLANLABS-2019M1010368

PATIENT
  Age: 69 Year
  Sex: Female

DRUGS (2)
  1. IMATINIB. [Suspect]
     Active Substance: IMATINIB MESYLATE
     Indication: ACUTE LYMPHOCYTIC LEUKAEMIA
     Dosage: 600 MILLIGRAM, QD
  2. IMATINIB. [Suspect]
     Active Substance: IMATINIB MESYLATE
     Indication: B-CELL TYPE ACUTE LEUKAEMIA

REACTIONS (9)
  - Pneumatosis intestinalis [Recovered/Resolved]
  - Pain [Recovering/Resolving]
  - Dysphagia [Recovering/Resolving]
  - Emphysema [Recovering/Resolving]
  - Nausea [Recovering/Resolving]
  - Odynophagia [Recovering/Resolving]
  - Constipation [Recovering/Resolving]
  - Abdominal distension [Recovering/Resolving]
  - Vomiting [Recovering/Resolving]
